FAERS Safety Report 23662074 (Version 1)
Quarter: 2024Q1

REPORT INFORMATION
  Report Type: Spontaneous
  Country: US (occurrence: US)
  Receive Date: 20240322
  Receipt Date: 20240322
  Transmission Date: 20240409
  Serious: No
  Sender: FDA-Public Use
  Company Number: US-AMNEAL PHARMACEUTICALS-2024-AMRX-00002

PATIENT
  Weight: 58.957 kg

DRUGS (1)
  1. ESTRADIOL TRANSDERMAL SYSTEM [Suspect]
     Active Substance: ESTRADIOL
     Indication: Migraine
     Dosage: UNK
     Route: 062

REACTIONS (2)
  - Migraine [Not Recovered/Not Resolved]
  - Product substitution issue [Unknown]
